FAERS Safety Report 19385425 (Version 16)
Quarter: 2022Q4

REPORT INFORMATION
  Report Type: Report from Study
  Country: US (occurrence: US)
  Receive Date: 20210607
  Receipt Date: 20221015
  Transmission Date: 20230113
  Serious: Yes (Other)
  Sender: FDA-Public Use
  Company Number: US-SHIRE-US202025784

PATIENT
  Age: 64 Year
  Sex: Female

DRUGS (1)
  1. HUMAN IMMUNOGLOBULIN G [Suspect]
     Active Substance: HUMAN IMMUNOGLOBULIN G
     Indication: Primary immunodeficiency syndrome
     Dosage: 10 GRAM, 1/WEEK
     Route: 065

REACTIONS (54)
  - Glaucoma [Not Recovered/Not Resolved]
  - Meniere^s disease [Unknown]
  - Spinal fracture [Unknown]
  - Impaired gastric emptying [Not Recovered/Not Resolved]
  - Bronchiectasis [Unknown]
  - Cough [Unknown]
  - Gastrooesophageal reflux disease [Not Recovered/Not Resolved]
  - Condition aggravated [Unknown]
  - Fall [Unknown]
  - Discomfort [Unknown]
  - COVID-19 [Unknown]
  - Confusional state [Unknown]
  - Memory impairment [Unknown]
  - Blood pressure decreased [Unknown]
  - Dyspnoea [Unknown]
  - Infusion site pruritus [Unknown]
  - Headache [Unknown]
  - Asthma [Not Recovered/Not Resolved]
  - Chest pain [Unknown]
  - Poor quality sleep [Unknown]
  - Sinusitis [Unknown]
  - Candida infection [Unknown]
  - Abdominal distension [Unknown]
  - Weight increased [Unknown]
  - Swelling [Not Recovered/Not Resolved]
  - Arthralgia [Unknown]
  - Anxiety [Unknown]
  - Fracture pain [Unknown]
  - Dizziness [Unknown]
  - Infusion site extravasation [Unknown]
  - Malaise [Unknown]
  - Pain [Unknown]
  - Speech disorder [Unknown]
  - Dysstasia [Unknown]
  - Dysphagia [Not Recovered/Not Resolved]
  - Fatigue [Unknown]
  - Product dose omission issue [Unknown]
  - Inappropriate schedule of product administration [Unknown]
  - Inability to afford medication [Unknown]
  - Post-acute COVID-19 syndrome [Unknown]
  - Lymphoedema [Not Recovered/Not Resolved]
  - Feeling abnormal [Unknown]
  - Eye contusion [Unknown]
  - Dry skin [Unknown]
  - Insomnia [Unknown]
  - Middle insomnia [Unknown]
  - Cyst [Unknown]
  - Meniscus injury [Unknown]
  - Ligament rupture [Unknown]
  - Trigger finger [Unknown]
  - Pyrexia [Unknown]
  - Nausea [Unknown]
  - Diastolic dysfunction [Unknown]
  - Blood pressure fluctuation [Unknown]

NARRATIVE: CASE EVENT DATE: 20200807
